FAERS Safety Report 25958170 (Version 1)
Quarter: 2025Q4

REPORT INFORMATION
  Report Type: Spontaneous
  Country: US (occurrence: US)
  Receive Date: 20251024
  Receipt Date: 20251024
  Transmission Date: 20260117
  Serious: No
  Sender: ELI LILLY AND COMPANY
  Company Number: US-ELI_LILLY_AND_COMPANY-US202510023927

PATIENT
  Age: 51 Year
  Sex: Female

DRUGS (2)
  1. TADALAFIL [Suspect]
     Active Substance: TADALAFIL
     Indication: Product used for unknown indication
     Dosage: UNK, UNKNOWN
     Route: 065
     Dates: end: 20251017
  2. TREPROSTINIL [Suspect]
     Active Substance: TREPROSTINIL
     Indication: Pulmonary arterial hypertension
     Dosage: 29.32NG/KG/MIN, CONTINUOUS
     Route: 058
     Dates: start: 202505

REACTIONS (5)
  - Anxiety [Unknown]
  - Headache [Unknown]
  - Malaise [Unknown]
  - Palpitations [Unknown]
  - Product dose omission issue [Unknown]
